FAERS Safety Report 24776301 (Version 1)
Quarter: 2024Q4

REPORT INFORMATION
  Report Type: Spontaneous
  Country: US (occurrence: US)
  Receive Date: 20241226
  Receipt Date: 20241226
  Transmission Date: 20250114
  Serious: Yes (Hospitalization, Other)
  Sender: CADILA
  Company Number: US-CPL-004855

PATIENT
  Sex: Male
  Weight: 2.8 kg

DRUGS (3)
  1. VENLAFAXINE [Suspect]
     Active Substance: VENLAFAXINE HYDROCHLORIDE
     Dosage: DURING THE FIRST 6 WEEKS OF PREGNANCY
     Route: 064
  2. VENLAFAXINE [Suspect]
     Active Substance: VENLAFAXINE HYDROCHLORIDE
     Dosage: BETWEEN THE 6TH AND 8TH WEEKS OF PREGNANCY
     Route: 064
  3. VENLAFAXINE [Suspect]
     Active Substance: VENLAFAXINE HYDROCHLORIDE
     Dosage: AFTER THE EIGHTH WEEK OF GESTATION UNTIL BIRTH
     Route: 064

REACTIONS (5)
  - Foetal exposure during pregnancy [Unknown]
  - Drug withdrawal syndrome neonatal [Recovered/Resolved]
  - Hypothermia neonatal [Recovered/Resolved]
  - Bradycardia neonatal [Recovered/Resolved]
  - Irritability [Recovered/Resolved]
